FAERS Safety Report 11091895 (Version 1)
Quarter: 2015Q2

REPORT INFORMATION
  Report Type: Spontaneous
  Country: US (occurrence: US)
  Receive Date: 20150505
  Receipt Date: 20150505
  Transmission Date: 20150821
  Serious: Yes (Hospitalization)
  Sender: FDA-Public Use
  Company Number: CHPA2014US000473

PATIENT
  Age: 71 Year
  Sex: Female

DRUGS (2)
  1. VOLTAREN [Suspect]
     Active Substance: DICLOFENAC SODIUM
     Indication: RHEUMATOID ARTHRITIS
     Dosage: HALF MIDDLE FINGER, BID
     Route: 061
  2. VOLTAREN [Suspect]
     Active Substance: DICLOFENAC SODIUM
     Indication: PAIN
     Dosage: HALF A MIDDLE FINGER, UNK
     Route: 061
     Dates: start: 2012

REACTIONS (13)
  - Gastric ulcer perforation [Recovering/Resolving]
  - Gastric dilatation [Recovered/Resolved]
  - Malaise [Recovering/Resolving]
  - Vomiting [Recovered/Resolved]
  - Dehydration [Recovered/Resolved]
  - Therapeutic response unexpected [Unknown]
  - Abdominal pain upper [Not Recovered/Not Resolved]
  - Feeling abnormal [Unknown]
  - Rheumatoid arthritis [Unknown]
  - Drug administered at inappropriate site [Unknown]
  - Inappropriate schedule of drug administration [Unknown]
  - Product use issue [Unknown]
  - Gastric ulcer [Recovering/Resolving]

NARRATIVE: CASE EVENT DATE: 2012
